FAERS Safety Report 16205267 (Version 1)
Quarter: 2019Q2

REPORT INFORMATION
  Report Type: Spontaneous
  Country: US (occurrence: US)
  Receive Date: 20190416
  Receipt Date: 20190416
  Transmission Date: 20190711
  Serious: Yes (Hospitalization, Other)
  Sender: FDA-Public Use
  Company Number: US-CONCORDIA PHARMACEUTICALS INC.-GSH201904-001139

PATIENT
  Age: 70 Year
  Sex: Female
  Weight: 51.71 kg

DRUGS (7)
  1. PREDNISONE. [Suspect]
     Active Substance: PREDNISONE
  2. PREDNISONE. [Suspect]
     Active Substance: PREDNISONE
     Indication: AUTOIMMUNE DISORDER
     Dosage: 3 TABLETS
     Dates: start: 201810
  3. PREDNISONE. [Suspect]
     Active Substance: PREDNISONE
     Dosage: 12.5-15MG
  4. HYDROXYCHLOROQUINE 200 MG TABLET [Suspect]
     Active Substance: HYDROXYCHLOROQUINE
     Indication: AUTOIMMUNE DISORDER
     Dosage: 200MG TABLET TAKEN BY MOUTH TWICE DAILY
     Route: 048
     Dates: start: 20181126
  5. PREDNISONE. [Suspect]
     Active Substance: PREDNISONE
  6. PREDNISONE. [Suspect]
     Active Substance: PREDNISONE
     Dosage: 15MG-20MG
  7. RELPAX [Suspect]
     Active Substance: ELETRIPTAN HYDROBROMIDE
     Indication: HEADACHE
     Dosage: TAKEN BY MOUTH AS NEEDED,SHE GENERALLY ONLY NEEDS TO TAKE THE RELPAX AT MOST 3 TIMES MONTHLY. THERA

REACTIONS (2)
  - Autoimmune disorder [Not Recovered/Not Resolved]
  - Headache [Not Recovered/Not Resolved]

NARRATIVE: CASE EVENT DATE: 201809
